FAERS Safety Report 19763300 (Version 1)
Quarter: 2021Q3

REPORT INFORMATION
  Report Type: Spontaneous
  Country: US (occurrence: US)
  Receive Date: 20210830
  Receipt Date: 20210830
  Transmission Date: 20211014
  Serious: No
  Sender: FDA-Public Use
  Company Number: US-ENDO PHARMACEUTICALS INC-2021-009821

PATIENT
  Sex: Female

DRUGS (1)
  1. MEGESTROL ACETATE. [Suspect]
     Active Substance: MEGESTROL ACETATE
     Indication: INCREASED APPETITE
     Dosage: UNK UNKNOWN, UNKNOWN
     Route: 065
     Dates: start: 20210519

REACTIONS (2)
  - Therapeutic product effect incomplete [Unknown]
  - Product colour issue [Unknown]
